FAERS Safety Report 7609399-6 (Version None)
Quarter: 2011Q3

REPORT INFORMATION
  Report Type: 
  Country: None (occurrence: None)
  Receive Date: 20110714
  Receipt Date: 20110712
  Transmission Date: 20111222
  Serious: Yes (Other)
  Sender: FDA-Public Use
  Company Number: US-PFIZER INC-2011008307

PATIENT
  Sex: Female
  Weight: 122 kg

DRUGS (3)
  1. PROMETHAZINE HYDROCHLORIDE [Concomitant]
     Indication: NAUSEA
     Dosage: UNK
     Route: 048
     Dates: start: 20090801
  2. LYRICA [Suspect]
     Indication: FIBROMYALGIA
     Dosage: 75 MG, 3X/DAY
     Route: 048
     Dates: start: 20080101
  3. LYRICA [Suspect]
     Dosage: 450 MG, 3X/DAY
     Route: 048
     Dates: start: 20080201

REACTIONS (1)
  - DRUG WITHDRAWAL SYNDROME [None]
